FAERS Safety Report 24728815 (Version 2)
Quarter: 2024Q4

REPORT INFORMATION
  Report Type: Spontaneous
  Country: TW (occurrence: TW)
  Receive Date: 20241212
  Receipt Date: 20241217
  Transmission Date: 20250114
  Serious: Yes (Other)
  Sender: TAKEDA
  Company Number: TW-LUNDBECK-DKLU4007949

PATIENT
  Age: 25 Year
  Sex: Female

DRUGS (3)
  1. VORTIOXETINE [Suspect]
     Active Substance: VORTIOXETINE
     Indication: Major depression
     Dosage: 5 MILLIGRAM, QD
  2. VORTIOXETINE [Suspect]
     Active Substance: VORTIOXETINE
     Dosage: 20 MILLIGRAM, QD
  3. CLONAZEPAM [Suspect]
     Active Substance: CLONAZEPAM
     Indication: Product used for unknown indication
     Dosage: 0.5 MILLIGRAM, QD

REACTIONS (6)
  - Melaena [Recovered/Resolved]
  - Haemorrhagic diathesis [Unknown]
  - Heavy menstrual bleeding [Unknown]
  - Abnormal uterine bleeding [Recovered/Resolved]
  - Contusion [Unknown]
  - Vaginal haemorrhage [Recovered/Resolved]
